FAERS Safety Report 6217038-4 (Version None)
Quarter: 2009Q2

REPORT INFORMATION
  Report Type: 
  Country: None (occurrence: None)
  Receive Date: 20090604
  Receipt Date: 20090528
  Transmission Date: 20091009
  Serious: Yes (Hospitalization)
  Sender: FDA-Public Use
  Company Number: 2009SP011828

PATIENT
  Age: 70 Year
  Sex: Female

DRUGS (2)
  1. BETAMETHASONE [Suspect]
     Indication: DRUG USE FOR UNKNOWN INDICATION
     Dosage: 3 MG; QD; PO
     Route: 048
     Dates: start: 20090423, end: 20090427
  2. PREDNISONE TAB [Suspect]
     Indication: PAIN
     Dosage: 20 MG; QD; PO
     Route: 048
     Dates: start: 20090409, end: 20090420

REACTIONS (6)
  - ACUTE GENERALISED EXANTHEMATOUS PUSTULOSIS [None]
  - CHEILITIS [None]
  - CHLAMYDIA IDENTIFICATION TEST POSITIVE [None]
  - GENITAL DISORDER FEMALE [None]
  - HYPERTHERMIA [None]
  - ORAL DISORDER [None]
